FAERS Safety Report 11804432 (Version 1)
Quarter: 2015Q4

REPORT INFORMATION
  Report Type: Spontaneous
  Country: US (occurrence: US)
  Receive Date: 20151204
  Receipt Date: 20151204
  Transmission Date: 20160305
  Serious: Yes (Other)
  Sender: FDA-Public Use
  Company Number: US-ENDO PHARMACEUTICALS INC.-201501158

PATIENT
  Age: 53 Year
  Sex: Male
  Weight: 113.95 kg

DRUGS (22)
  1. POTASSIUM [Concomitant]
     Active Substance: POTASSIUM
     Dates: start: 20121029
  2. TERBINAFINE. [Concomitant]
     Active Substance: TERBINAFINE
  3. SIMVASTATIN. [Concomitant]
     Active Substance: SIMVASTATIN
     Dates: start: 201210
  4. DIAZEPAM. [Concomitant]
     Active Substance: DIAZEPAM
     Dates: start: 2010
  5. LISINOPRIL. [Concomitant]
     Active Substance: LISINOPRIL
     Dates: start: 20111222
  6. NAPROXEN. [Concomitant]
     Active Substance: NAPROXEN
     Dates: start: 20120810
  7. CLONIDINE. [Concomitant]
     Active Substance: CLONIDINE
     Dates: start: 20120307
  8. TESTOSTERONE CYPIONATE. [Suspect]
     Active Substance: TESTOSTERONE CYPIONATE
     Indication: ASTHENIA
  9. PHENTERMINE. [Concomitant]
     Active Substance: PHENTERMINE
     Dates: start: 20101014
  10. LOSARTAN. [Concomitant]
     Active Substance: LOSARTAN
     Dosage: 50/12.5
     Dates: start: 20120319
  11. CARVEDILOL. [Concomitant]
     Active Substance: CARVEDILOL
  12. BENICAR [Concomitant]
     Active Substance: OLMESARTAN MEDOXOMIL
     Dates: start: 20101108
  13. ZOLPIDEM [Concomitant]
     Active Substance: ZOLPIDEM\ZOLPIDEM TARTRATE
     Dates: start: 2011
  14. BETAMETHASONE. [Concomitant]
     Active Substance: BETAMETHASONE
  15. LIPITOR [Concomitant]
     Active Substance: ATORVASTATIN CALCIUM
     Dates: start: 2009
  16. TESTIM [Suspect]
     Active Substance: TESTOSTERONE
     Indication: BLOOD TESTOSTERONE DECREASED
     Route: 062
     Dates: start: 20121024, end: 20130216
  17. TESTIM [Suspect]
     Active Substance: TESTOSTERONE
     Indication: ASTHENIA
  18. PREDNISONE. [Concomitant]
     Active Substance: PREDNISONE
  19. AMLODIPINE [Concomitant]
     Active Substance: AMLODIPINE BESYLATE
     Dates: start: 20110429
  20. BYSTOLIC [Concomitant]
     Active Substance: NEBIVOLOL HYDROCHLORIDE
     Dates: start: 2011
  21. HYDROCODONE [Concomitant]
     Active Substance: HYDROCODONE
     Dates: start: 20110901
  22. HYZAAR [Concomitant]
     Active Substance: HYDROCHLOROTHIAZIDE\LOSARTAN POTASSIUM
     Dosage: 50/12.5
     Dates: start: 20120828

REACTIONS (1)
  - Pulmonary embolism [Unknown]

NARRATIVE: CASE EVENT DATE: 20121108
